FAERS Safety Report 26202180 (Version 1)
Quarter: 2025Q4

REPORT INFORMATION
  Report Type: Spontaneous
  Country: US (occurrence: US)
  Receive Date: 20251226
  Receipt Date: 20251226
  Transmission Date: 20260117
  Serious: No
  Sender: SANOFI AVENTIS
  Company Number: US-SANOFI-02760601

PATIENT
  Age: 32 Year
  Sex: Female

DRUGS (2)
  1. BEYFORTUS [Suspect]
     Active Substance: NIRSEVIMAB-ALIP
     Indication: Antiviral prophylaxis
     Dosage: 50 MG, 1X
     Dates: start: 20251219, end: 20251219
  2. ABRYSVO [Suspect]
     Active Substance: RECOMBINANT STABILIZED RSV A PREFUSION F ANTIGEN\RECOMBINANT STABILIZED RSV B PREFUSION F ANTIGEN
     Indication: Antiviral prophylaxis
     Dosage: UNK

REACTIONS (3)
  - Maternal exposure during pregnancy [Unknown]
  - Product administered to patient of inappropriate age [Unknown]
  - Wrong product administered [Unknown]

NARRATIVE: CASE EVENT DATE: 20251219
